FAERS Safety Report 15494677 (Version 1)
Quarter: 2018Q4

REPORT INFORMATION
  Report Type: Spontaneous
  Country: TR (occurrence: TR)
  Receive Date: 20181012
  Receipt Date: 20181012
  Transmission Date: 20190205
  Serious: Yes (Other)
  Sender: FDA-Public Use
  Company Number: TR-UNICHEM PHARMACEUTICALS (USA) INC-UCM201810-000256

PATIENT
  Age: 36 Year
  Sex: Male

DRUGS (2)
  1. LITHIUM. [Concomitant]
     Active Substance: LITHIUM
     Indication: BIPOLAR DISORDER
  2. QUETIAPINE. [Suspect]
     Active Substance: QUETIAPINE
     Indication: DEPRESSION

REACTIONS (1)
  - Pulmonary embolism [Recovered/Resolved]
